FAERS Safety Report 8225418-0 (Version None)
Quarter: 2012Q1

REPORT INFORMATION
  Report Type: 
  Country: None (occurrence: None)
  Receive Date: 20120321
  Receipt Date: 20120314
  Transmission Date: 20120608
  Serious: Yes (Hospitalization)
  Sender: FDA-Public Use
  Company Number: NL-MEDIMMUNE-MEDI-0014316

PATIENT
  Sex: Female
  Weight: 3.49 kg

DRUGS (2)
  1. SYNAGIS [Suspect]
     Indication: PREMATURE BABY
     Route: 030
     Dates: start: 20111122, end: 20111122
  2. SYNAGIS [Suspect]
     Route: 030
     Dates: start: 20111220, end: 20120214

REACTIONS (2)
  - COUGH [None]
  - INFANTILE SPITTING UP [None]
